FAERS Safety Report 8335781-8 (Version None)
Quarter: 2012Q2

REPORT INFORMATION
  Report Type: 
  Country: None (occurrence: None)
  Receive Date: 20120504
  Receipt Date: 20120427
  Transmission Date: 20120825
  Serious: No
  Sender: FDA-Public Use
  Company Number: US-BIOGENIDEC-2012BI014773

PATIENT
  Age: 43 Year
  Sex: Female

DRUGS (1)
  1. AVONEX [Suspect]
     Indication: MULTIPLE SCLEROSIS
     Route: 030
     Dates: start: 20120331, end: 20120427

REACTIONS (10)
  - LUNG INFECTION [None]
  - FATIGUE [None]
  - BRONCHITIS [None]
  - MUSCULOSKELETAL DISORDER [None]
  - FEELING HOT [None]
  - UPPER RESPIRATORY TRACT INFECTION [None]
  - COUGH [None]
  - HEADACHE [None]
  - DYSPNOEA [None]
  - IRRITABILITY [None]
